FAERS Safety Report 14535575 (Version 6)
Quarter: 2018Q2

REPORT INFORMATION
  Report Type: Report from Study
  Country: CH (occurrence: CH)
  Receive Date: 20180215
  Receipt Date: 20180619
  Transmission Date: 20180711
  Serious: Yes (Life-Threatening, Hospitalization, Other)
  Sender: FDA-Public Use
  Company Number: CH-PFIZER INC-2018064491

PATIENT
  Age: 56 Year
  Sex: Female
  Weight: 60 kg

DRUGS (5)
  1. PANTOPRAZOL [Concomitant]
     Active Substance: PANTOPRAZOLE SODIUM
     Dosage: UNK
  2. XELJANZ [Suspect]
     Active Substance: TOFACITINIB CITRATE
     Indication: RHEUMATOID ARTHRITIS
     Dosage: 5 MG, 2X/DAY
     Route: 048
     Dates: start: 20170911, end: 20180206
  3. LODOTRA [Concomitant]
     Active Substance: PREDNISONE
     Dosage: 10 UNITS NOT REPORTED, DAILY (BASIC THERAPY)
     Route: 048
     Dates: start: 20170404
  4. VOLTAREN [Concomitant]
     Active Substance: DICLOFENAC SODIUM
     Dosage: UNK
  5. SPIRICORT [Interacting]
     Active Substance: PREDNISOLONE
     Indication: RHEUMATOID ARTHRITIS
     Dosage: 10MG/DAY (AT HOSPITALIZATION; DOSE VARYING)
     Route: 048
     Dates: start: 201709

REACTIONS (8)
  - Septic shock [Recovering/Resolving]
  - Lactic acidosis [Unknown]
  - Alanine aminotransferase increased [Unknown]
  - Meningococcal bacteraemia [Recovering/Resolving]
  - Drug interaction [Recovering/Resolving]
  - Malaise [Unknown]
  - Vomiting [Unknown]
  - Aspartate aminotransferase increased [Unknown]

NARRATIVE: CASE EVENT DATE: 20180118
